FAERS Safety Report 23798573 (Version 1)
Quarter: 2024Q2

REPORT INFORMATION
  Report Type: Spontaneous
  Country: US (occurrence: None)
  Receive Date: 20240427
  Receipt Date: 20240427
  Transmission Date: 20240716
  Serious: No
  Sender: FDA-Public Use
  Company Number: None

PATIENT
  Age: 27 Year
  Sex: Female
  Weight: 72 kg

DRUGS (1)
  1. ANNOVERA [Suspect]
     Active Substance: ETHINYL ESTRADIOL\SEGESTERONE ACETATE
     Indication: Contraception
     Dosage: OTHER QUANTITY : 1 RING;?
     Route: 067
     Dates: start: 20240419, end: 20240424

REACTIONS (3)
  - Gastroenteritis viral [None]
  - Sleep disorder [None]
  - Asthenia [None]

NARRATIVE: CASE EVENT DATE: 20240420
